FAERS Safety Report 8608794-6 (Version None)
Quarter: 2012Q3

REPORT INFORMATION
  Report Type: 
  Country: None (occurrence: None)
  Receive Date: 20120821
  Receipt Date: 20120817
  Transmission Date: 20120928
  Serious: Yes (Hospitalization, Congenital Anomaly)
  Sender: FDA-Public Use
  Company Number: US-FRI-1000037934

PATIENT
  Sex: Female

DRUGS (1)
  1. LEXAPRO [Suspect]
     Route: 064
     Dates: end: 20070928

REACTIONS (6)
  - VOMITING [None]
  - UNDERWEIGHT [None]
  - CONGENITAL CARDIOVASCULAR ANOMALY [None]
  - FAILURE TO THRIVE [None]
  - RESPIRATORY SYNCYTIAL VIRUS INFECTION [None]
  - PREMATURE BABY [None]
